FAERS Safety Report 22208712 (Version 1)
Quarter: 2023Q2

REPORT INFORMATION
  Report Type: Spontaneous
  Country: US (occurrence: US)
  Receive Date: 20230413
  Receipt Date: 20230413
  Transmission Date: 20230722
  Serious: Yes (Other)
  Sender: FDA-Public Use
  Company Number: US-JNJFOC-20230422668

PATIENT
  Age: 66 Year
  Sex: Female

DRUGS (1)
  1. IBRUTINIB [Suspect]
     Active Substance: IBRUTINIB
     Indication: Paraneoplastic retinopathy
     Route: 048
     Dates: start: 20170608

REACTIONS (2)
  - Paraneoplastic retinopathy [Unknown]
  - Fall [Unknown]

NARRATIVE: CASE EVENT DATE: 20190402
